FAERS Safety Report 6062610-8 (Version None)
Quarter: 2009Q1

REPORT INFORMATION
  Report Type: 
  Country: None (occurrence: None)
  Receive Date: 20090203
  Receipt Date: 20090127
  Transmission Date: 20090719
  Serious: Yes (Hospitalization)
  Sender: FDA-Public Use
  Company Number: JP-BAYER-200910268BYL

PATIENT
  Age: 73 Year
  Sex: Male
  Weight: 45 kg

DRUGS (21)
  1. NEXAVAR [Suspect]
     Indication: RENAL CELL CARCINOMA STAGE IV
     Dosage: TOTAL DAILY DOSE: 800 MG  UNIT DOSE: 200 MG
     Route: 048
     Dates: start: 20080422
  2. NEXAVAR [Suspect]
     Dosage: UNIT DOSE: 200 MG
     Route: 048
     Dates: start: 20090113, end: 20090127
  3. F:K [Concomitant]
     Indication: PRURITUS
     Route: 061
  4. LAXOBERON [Concomitant]
     Indication: CONSTIPATION
     Route: 048
  5. HERBESSER R [Concomitant]
     Dosage: TOTAL DAILY DOSE: 200 MG  UNIT DOSE: 100 MG
     Route: 048
  6. FERROMIA [Concomitant]
     Dosage: TOTAL DAILY DOSE: 200 MG  UNIT DOSE: 50 MG
     Route: 048
  7. GASMOTIN [Concomitant]
     Dosage: TOTAL DAILY DOSE: 15 MG  UNIT DOSE: 5 MG
     Route: 048
  8. TAKEPRON [Concomitant]
     Dosage: TOTAL DAILY DOSE: 15 MG  UNIT DOSE: 15 MG
     Route: 048
  9. LAXOBERON [Concomitant]
     Dosage: TOTAL DAILY DOSE: 5.0 MG  UNIT DOSE: 2.5 MG
     Route: 048
  10. ATARAX [Concomitant]
     Dosage: TOTAL DAILY DOSE: 10 MG  UNIT DOSE: 10 MG
     Route: 048
  11. POLARAMINE [Concomitant]
     Dosage: TOTAL DAILY DOSE: 6 MG  UNIT DOSE: 2 MG
     Route: 048
  12. RIVOTRIL [Concomitant]
     Dosage: TOTAL DAILY DOSE: 0.5 MG  UNIT DOSE: 0.5 MG
     Route: 048
  13. MAGMITT [Concomitant]
     Dosage: TOTAL DAILY DOSE: 1980 MG  UNIT DOSE: 330 MG
     Route: 048
  14. TELEMINSOFT [Concomitant]
     Indication: CONSTIPATION
     Dosage: UNIT DOSE: 10 MG
     Route: 054
  15. ALOSENN [Concomitant]
     Dosage: TOTAL DAILY DOSE: 2 G  UNIT DOSE: 1 G
     Route: 048
  16. ALOSENN [Concomitant]
     Dosage: TOTAL DAILY DOSE: 1 G  UNIT DOSE: 1 G
     Route: 048
  17. OXYCONTIN [Concomitant]
     Dosage: TOTAL DAILY DOSE: 320 MG  UNIT DOSE: 80 MG
     Route: 048
  18. OXYCONTIN [Concomitant]
     Dosage: TOTAL DAILY DOSE: 40 MG  UNIT DOSE: 20 MG
     Route: 048
  19. MORPHINE [Concomitant]
     Indication: PAIN
     Route: 048
  20. LENDORMIN D [Concomitant]
     Dosage: TOTAL DAILY DOSE: 0.25 MG  UNIT DOSE: 0.25 MG
     Route: 048
  21. ALPRAZOLAM [Concomitant]
     Dosage: TOTAL DAILY DOSE: 1.2 MG  UNIT DOSE: 0.4 MG
     Route: 048

REACTIONS (4)
  - BLOOD THYROID STIMULATING HORMONE INCREASED [None]
  - PLATELET COUNT DECREASED [None]
  - UPPER RESPIRATORY TRACT INFLAMMATION [None]
  - WHITE BLOOD CELL COUNT DECREASED [None]
